FAERS Safety Report 7541330-4 (Version None)
Quarter: 2011Q2

REPORT INFORMATION
  Report Type: 
  Country: None (occurrence: None)
  Receive Date: 20110612
  Receipt Date: 20110601
  Transmission Date: 20111010
  Serious: Yes (Hospitalization)
  Sender: FDA-Public Use
  Company Number: US-ELI_LILLY_AND_COMPANY-US201106002047

PATIENT
  Age: 60 Year
  Sex: Female

DRUGS (31)
  1. ALBUTEROL SULFATE AUTOHALER [Concomitant]
  2. DILTIAZEM [Concomitant]
  3. NIZORAL [Concomitant]
  4. OXYCODONE HCL [Concomitant]
  5. SINGULAIR [Concomitant]
  6. CALCIUM WITH VITAMIN D [Concomitant]
  7. VITAMIN D [Concomitant]
  8. LANTUS [Concomitant]
  9. IMODIUM MULTI-SYMPTOM RELIEF [Concomitant]
  10. PRILOSEC [Concomitant]
  11. ZOFRAN [Concomitant]
  12. ASPIRIN [Concomitant]
  13. MS CONTIN [Concomitant]
  14. TRAZODONE HCL [Concomitant]
  15. CYMBALTA [Suspect]
     Indication: PAIN
  16. DOXYCYCLINE [Concomitant]
  17. LASIX [Concomitant]
  18. LOPRESSOR [Concomitant]
  19. BACTRIM [Concomitant]
  20. SEROQUEL [Concomitant]
  21. GABAPENTIN [Concomitant]
  22. ULTRAVATE [Concomitant]
  23. NOVOLOG [Concomitant]
  24. MAGNESIUM SULFATE [Concomitant]
  25. LIDODERM [Concomitant]
  26. FORTEO [Suspect]
     Indication: OSTEOPOROSIS
     Dosage: 20 UG, QD
  27. PREDNISONE [Concomitant]
  28. ADVAIR DISKUS 100/50 [Concomitant]
  29. MULTI-VITAMIN [Concomitant]
  30. POTASSIUM CHLORIDE [Concomitant]
  31. ZANTAC [Concomitant]

REACTIONS (1)
  - PNEUMONIA [None]
